FAERS Safety Report 9699565 (Version 1)
Quarter: 2013Q4

REPORT INFORMATION
  Report Type: Spontaneous
  Country: IT (occurrence: IT)
  Receive Date: 20131120
  Receipt Date: 20131120
  Transmission Date: 20140711
  Serious: Yes (Hospitalization, Other)
  Sender: FDA-Public Use
  Company Number: PHHY2013IT131796

PATIENT
  Age: 83 Year
  Sex: Male

DRUGS (4)
  1. AMLODIPINE [Suspect]
     Dates: start: 20130101, end: 20131003
  2. RISPERIDONE [Suspect]
     Dosage: 2 MG, QD
     Route: 048
     Dates: start: 20130926, end: 20131003
  3. TARGIN [Suspect]
     Dosage: 1 DF, QD
     Route: 048
     Dates: start: 20130926, end: 20131003
  4. CARDIOASPIRIN [Concomitant]

REACTIONS (1)
  - Agitation [Recovering/Resolving]
